FAERS Safety Report 5631124-9 (Version None)
Quarter: 2008Q1

REPORT INFORMATION
  Report Type: 
  Country: None (occurrence: None)
  Receive Date: 20080131
  Receipt Date: 20071025
  Transmission Date: 20080703
  Serious: No
  Sender: FDA-Public Use
  Company Number: 163-21880-07101666

PATIENT
  Age: 56 Year
  Sex: Male

DRUGS (3)
  1. REVLIMID [Suspect]
     Indication: MULTIPLE MYELOMA
     Dosage: 10 MG, QD X21 DAYS, ORAL; 15 MG, QOD, ORAL
     Route: 048
     Dates: start: 20070716, end: 20071010
  2. DEXAMETHASONE TAB [Concomitant]
  3. ASPIRIN [Concomitant]

REACTIONS (5)
  - BONE PAIN [None]
  - DIZZINESS [None]
  - FATIGUE [None]
  - HYPOAESTHESIA [None]
  - RASH [None]
